FAERS Safety Report 16792654 (Version 1)
Quarter: 2019Q3

REPORT INFORMATION
  Report Type: Report from Study
  Country: MY (occurrence: MY)
  Receive Date: 20190910
  Receipt Date: 20190910
  Transmission Date: 20191005
  Serious: Yes (Other)
  Sender: FDA-Public Use
  Company Number: MY-SEATTLE GENETICS-2019SGN03095

PATIENT
  Age: 26 Year
  Sex: Female

DRUGS (1)
  1. BRENTUXIMAB VEDOTIN-MPI [Suspect]
     Active Substance: BRENTUXIMAB VEDOTIN
     Indication: HODGKIN^S DISEASE
     Dosage: 80 MILLIGRAM, Q21D
     Route: 042
     Dates: start: 20180709

REACTIONS (2)
  - Rash [Unknown]
  - Haematemesis [Unknown]

NARRATIVE: CASE EVENT DATE: 20190826
